FAERS Safety Report 6839338-7 (Version None)
Quarter: 2010Q3

REPORT INFORMATION
  Report Type: 
  Country: None (occurrence: None)
  Receive Date: 20100714
  Receipt Date: 20100705
  Transmission Date: 20110219
  Serious: Yes (Hospitalization)
  Sender: FDA-Public Use
  Company Number: PHHY2010CN34322

PATIENT
  Age: 42 Year
  Sex: Male

DRUGS (2)
  1. CARBAMAZEPINE [Suspect]
     Indication: TRIGEMINAL NEURALGIA
     Dosage: 100 MG, BID
  2. CARBAMAZEPINE [Suspect]
     Dosage: 600 MG, DAILY

REACTIONS (7)
  - BLISTER [None]
  - DERMATITIS EXFOLIATIVE GENERALISED [None]
  - FLUSHING [None]
  - LIP SWELLING [None]
  - SCAB [None]
  - SKIN EXFOLIATION [None]
  - SWELLING [None]
